FAERS Safety Report 7735564-3 (Version None)
Quarter: 2011Q3

REPORT INFORMATION
  Report Type: 
  Country: None (occurrence: None)
  Receive Date: 20110907
  Receipt Date: 20110823
  Transmission Date: 20111222
  Serious: Yes (Other)
  Sender: FDA-Public Use
  Company Number: CA-JUTA GMBH-2011-13999

PATIENT
  Age: 63 Year
  Sex: Female

DRUGS (3)
  1. VALPROATE SODIUM [Suspect]
     Indication: BIPOLAR DISORDER
     Dosage: UNKNOWN
     Route: 065
  2. LITHIUM CARBONATE [Suspect]
     Indication: BIPOLAR DISORDER
     Dosage: UNKNOWN
     Route: 065
  3. OLANZAPINE [Suspect]
     Indication: BIPOLAR DISORDER
     Dosage: UNKNOWN
     Route: 065

REACTIONS (7)
  - MUSCLE RIGIDITY [None]
  - DRUG INTERACTION [None]
  - PROGRESSIVE SUPRANUCLEAR PALSY [None]
  - PARKINSONISM [None]
  - GAIT DISTURBANCE [None]
  - SACCADIC EYE MOVEMENT [None]
  - AKINESIA [None]
